FAERS Safety Report 4358420-X (Version None)
Quarter: 2004Q2

REPORT INFORMATION
  Report Type: 
  Country: None (occurrence: None)
  Receive Date: 20040514
  Receipt Date: 20040503
  Transmission Date: 20050107
  Serious: Yes (Death, Hospitalization)
  Sender: FDA-Public Use
  Company Number: FR-ROCHE-366180

PATIENT
  Age: 69 Year
  Sex: Male

DRUGS (5)
  1. CAPECITABINE [Suspect]
     Dosage: INTERMITTENT THERAPY GIVEN AS TWO WEEKS TREATMENT FOLLOWED BY ONE WEEKS REST.
     Route: 048
     Dates: start: 20040401, end: 20040406
  2. OXALIPLATIN [Suspect]
     Route: 042
     Dates: start: 20040401, end: 20040401
  3. APRONAL [Concomitant]
  4. FORLAX [Concomitant]
  5. BROMAZEPAM [Concomitant]

REACTIONS (2)
  - GASTROINTESTINAL OBSTRUCTION [None]
  - HEPATIC FAILURE [None]
